FAERS Safety Report 25137292 (Version 1)
Quarter: 2025Q1

REPORT INFORMATION
  Report Type: Spontaneous
  Country: FR (occurrence: FR)
  Receive Date: 20250329
  Receipt Date: 20250329
  Transmission Date: 20250409
  Serious: Yes (Other)
  Sender: TEVA
  Company Number: None

PATIENT
  Age: 91 Year
  Sex: Male

DRUGS (1)
  1. OLANZAPINE [Suspect]
     Active Substance: OLANZAPINE
     Indication: Medication error
     Route: 048
     Dates: start: 20250211, end: 20250211

REACTIONS (6)
  - Sinus bradycardia [Recovered/Resolved]
  - Disorientation [Recovered/Resolved]
  - Product prescribing error [Recovered/Resolved]
  - Incorrect dose administered [Recovered/Resolved]
  - Prescribed overdose [Recovered/Resolved]
  - Somnolence [Recovered/Resolved]

NARRATIVE: CASE EVENT DATE: 20250211
